FAERS Safety Report 20033550 (Version 5)
Quarter: 2022Q1

REPORT INFORMATION
  Report Type: Report from Study
  Country: KR (occurrence: None)
  Receive Date: 20211104
  Receipt Date: 20220110
  Transmission Date: 20220423
  Serious: Yes (Hospitalization)
  Sender: FDA-Public Use
  Company Number: KR-Eisai Medical Research-EC-2021-099360

PATIENT
  Age: 67 Year
  Sex: Male
  Weight: 70.6 kg

DRUGS (13)
  1. LENVATINIB [Suspect]
     Active Substance: LENVATINIB
     Indication: Renal cell carcinoma
     Dosage: STARTING DOSE AT 20 MILLIGRAM (FLUCTUATED DOSAGE)
     Route: 048
     Dates: start: 20210325, end: 20210616
  2. LENVATINIB [Suspect]
     Active Substance: LENVATINIB
     Route: 048
     Dates: start: 20210617, end: 20210721
  3. BELZUTIFAN [Suspect]
     Active Substance: BELZUTIFAN
     Indication: Renal cell carcinoma
     Route: 048
     Dates: start: 20210325, end: 20210721
  4. FINASTERIDE [Concomitant]
     Active Substance: FINASTERIDE
     Dates: start: 201801, end: 20210722
  5. AMLODIPINE [Concomitant]
     Active Substance: AMLODIPINE BESYLATE
     Dates: start: 202101
  6. NEBIVOLOL [Concomitant]
     Active Substance: NEBIVOLOL
     Dates: start: 202101, end: 20210726
  7. PRUCALOPRIDE [Concomitant]
     Active Substance: PRUCALOPRIDE
     Dates: start: 20210409, end: 20210722
  8. LANSOPRAZOLE [Concomitant]
     Active Substance: LANSOPRAZOLE
     Dates: start: 20210409, end: 20210722
  9. NALOXONE HYDROCHLORIDE\OXYCODONE HYDROCHLORIDE [Concomitant]
     Active Substance: NALOXONE HYDROCHLORIDE\OXYCODONE HYDROCHLORIDE
     Dates: start: 20210410, end: 20210722
  10. FENTANYL [Concomitant]
     Active Substance: FENTANYL
     Dates: start: 20210410, end: 20210722
  11. LACTULOSE [Concomitant]
     Active Substance: LACTULOSE
     Dates: start: 20210527, end: 20210722
  12. METHYLPREDNISOLONE [Concomitant]
     Active Substance: METHYLPREDNISOLONE
     Dates: start: 20210617, end: 20210722
  13. MONTMORILLONITE [Concomitant]
     Active Substance: MONTMORILLONITE
     Dates: start: 20210724, end: 20210724

REACTIONS (2)
  - Delirium [Not Recovered/Not Resolved]
  - Anaemia [Recovered/Resolved]

NARRATIVE: CASE EVENT DATE: 20210724
